FAERS Safety Report 23759318 (Version 1)
Quarter: 2024Q2

REPORT INFORMATION
  Report Type: Spontaneous
  Country: US (occurrence: None)
  Receive Date: 20240418
  Receipt Date: 20240418
  Transmission Date: 20240716
  Serious: No
  Sender: FDA-Public Use
  Company Number: US-ROCHE-3347338

PATIENT
  Age: 76 Year
  Sex: Male

DRUGS (1)
  1. ESBRIET [Suspect]
     Active Substance: PIRFENIDONE
     Indication: Product used for unknown indication
     Dosage: ONGOING- YES
     Route: 048
     Dates: start: 20190620

REACTIONS (2)
  - Abdominal discomfort [Unknown]
  - Hangover [Unknown]

NARRATIVE: CASE EVENT DATE: 20190620
